FAERS Safety Report 7015992-4 (Version None)
Quarter: 2010Q3

REPORT INFORMATION
  Report Type: 
  Country: None (occurrence: None)
  Receive Date: 20100927
  Receipt Date: 20100309
  Transmission Date: 20110219
  Serious: No
  Sender: FDA-Public Use
  Company Number: US-ASTRAZENECA-2007UW05370

PATIENT
  Age: 55 Year
  Sex: Female
  Weight: 93.4 kg

DRUGS (4)
  1. ARIMIDEX [Suspect]
     Indication: BREAST CANCER STAGE III
     Route: 048
     Dates: start: 20070201
  2. XANAX [Concomitant]
  3. TYLENOL (CAPLET) [Concomitant]
  4. PROZAC [Concomitant]
     Dosage: 1/4 TABLESPOON

REACTIONS (13)
  - AMNESIA [None]
  - ARTHRALGIA [None]
  - ASTHENIA [None]
  - BACK PAIN [None]
  - CRYING [None]
  - DEPRESSION [None]
  - GAIT DISTURBANCE [None]
  - LYMPHOEDEMA [None]
  - MOOD SWINGS [None]
  - NECK PAIN [None]
  - NEPHROLITHIASIS [None]
  - POST-TRAUMATIC STRESS DISORDER [None]
  - VITAMIN D DEFICIENCY [None]
